FAERS Safety Report 5024199-1 (Version None)
Quarter: 2006Q2

REPORT INFORMATION
  Report Type: 
  Country: None (occurrence: None)
  Receive Date: 20060607
  Receipt Date: 20060524
  Transmission Date: 20061013
  Serious: Yes (Other)
  Sender: FDA-Public Use
  Company Number: 225757

PATIENT
  Age: 46 Year
  Sex: Female

DRUGS (3)
  1. HERCEPTIN [Suspect]
     Indication: BREAST CANCER
     Dosage: 567 MG, SINGLE, INTRAVENOUS
     Route: 042
     Dates: start: 20060503
  2. ANASTROZOLE [Concomitant]
  3. TAMOXIFEN CITRATE [Concomitant]

REACTIONS (4)
  - CONDITION AGGRAVATED [None]
  - DERMATITIS [None]
  - HYPERHIDROSIS [None]
  - OEDEMA PERIPHERAL [None]
